FAERS Safety Report 12436276 (Version 2)
Quarter: 2016Q4

REPORT INFORMATION
  Report Type: Spontaneous
  Country: US (occurrence: US)
  Receive Date: 20160605
  Receipt Date: 20161028
  Transmission Date: 20170207
  Serious: Yes (Hospitalization, Disabling)
  Sender: FDA-Public Use
  Company Number: US-ENDO PHARMACEUTICALS INC.-2016-003688

PATIENT
  Age: 62 Year
  Sex: Male
  Weight: 88.53 kg

DRUGS (1)
  1. TESTIM [Suspect]
     Active Substance: TESTOSTERONE
     Indication: ANDROGEN REPLACEMENT THERAPY
     Route: 062
     Dates: start: 2011, end: 2013

REACTIONS (7)
  - Toe amputation [Not Recovered/Not Resolved]
  - Renal failure [Recovering/Resolving]
  - Cardiac failure acute [Unknown]
  - Coronary artery disease [Unknown]
  - Mitral valve incompetence [Unknown]
  - Myocardial infarction [Not Recovered/Not Resolved]
  - Anaemia [Unknown]

NARRATIVE: CASE EVENT DATE: 20130610
